FAERS Safety Report 26014533 (Version 1)
Quarter: 2025Q4

REPORT INFORMATION
  Report Type: Spontaneous
  Country: US (occurrence: US)
  Receive Date: 20251108
  Receipt Date: 20251108
  Transmission Date: 20260117
  Serious: No
  Sender: SANOFI AVENTIS
  Company Number: US-SA-2025SA323349

PATIENT
  Age: 68 Year
  Sex: Male

DRUGS (1)
  1. DUPIXENT [Suspect]
     Active Substance: DUPILUMAB
     Indication: Asthma
     Dosage: 300 MG, QOW
     Route: 058

REACTIONS (19)
  - Productive cough [Unknown]
  - Dyspnoea [Unknown]
  - Presyncope [Unknown]
  - Irregular breathing [Unknown]
  - Anxiety [Unknown]
  - Mouth breathing [Unknown]
  - Abdominal distension [Unknown]
  - Rhinorrhoea [Unknown]
  - Nasal obstruction [Unknown]
  - Chest discomfort [Unknown]
  - Abdominal discomfort [Unknown]
  - Musculoskeletal discomfort [Unknown]
  - Chest pain [Unknown]
  - Abdominal pain [Unknown]
  - Headache [Not Recovered/Not Resolved]
  - Initial insomnia [Unknown]
  - Quality of life decreased [Unknown]
  - Dizziness [Unknown]
  - Arthralgia [Unknown]
